FAERS Safety Report 11213264 (Version 1)
Quarter: 2015Q2

REPORT INFORMATION
  Report Type: Spontaneous
  Country: US (occurrence: US)
  Receive Date: 20150623
  Receipt Date: 20150623
  Transmission Date: 20150821
  Serious: Yes (Hospitalization, Other)
  Sender: FDA-Public Use
  Company Number: US-GLAXOSMITHKLINE-US2015GSK088815

PATIENT
  Sex: Female

DRUGS (19)
  1. CREON [Concomitant]
     Active Substance: PANCRELIPASE AMYLASE\PANCRELIPASE LIPASE\PANCRELIPASE PROTEASE
  2. PROCTOZONE [Concomitant]
     Active Substance: HYDROCORTISONE
  3. FENOFIBRATE. [Concomitant]
     Active Substance: FENOFIBRATE
  4. OXYBUTIN [Concomitant]
     Active Substance: OXYBUTYNIN
  5. OMEPRAZOLE. [Concomitant]
     Active Substance: OMEPRAZOLE
  6. ONDANSETRON [Concomitant]
     Active Substance: ONDANSETRON
  7. MIRTAZAPINE. [Concomitant]
     Active Substance: MIRTAZAPINE
  8. DIAZEPAM. [Concomitant]
     Active Substance: DIAZEPAM
  9. NICODERM CQ [Suspect]
     Active Substance: NICOTINE
     Indication: SMOKING CESSATION THERAPY
     Route: 062
  10. AMLODIPINE [Concomitant]
     Active Substance: AMLODIPINE BESYLATE
  11. DOCUSATE SODIUM. [Concomitant]
     Active Substance: DOCUSATE SODIUM
  12. FLUTICASONE [Concomitant]
     Active Substance: FLUTICASONE\FLUTICASONE PROPIONATE
  13. EXELON PATCH [Interacting]
     Active Substance: RIVASTIGMINE
     Indication: DEMENTIA
     Dosage: 9.5 UNK, UNK
     Route: 062
  14. VITAMIN D [Concomitant]
     Active Substance: CHOLECALCIFEROL
  15. DIPHENHYDRAMINE [Concomitant]
     Active Substance: DIPHENHYDRAMINE
  16. EXELON PATCH [Interacting]
     Active Substance: RIVASTIGMINE
     Dosage: 13.3 MG, UNK
     Route: 062
  17. OYSTER SHELL CALCIUM WITH VITAMIN D [Concomitant]
     Active Substance: CALCIUM\CHOLECALCIFEROL
  18. DOXAZOSIN MESYLATE. [Concomitant]
     Active Substance: DOXAZOSIN MESYLATE
  19. ASPIRIN (BABY) [Concomitant]
     Active Substance: ASPIRIN

REACTIONS (8)
  - Eye pruritus [Unknown]
  - Colitis [Unknown]
  - Pancreatitis [Unknown]
  - Abnormal dreams [Unknown]
  - Dysphonia [Unknown]
  - Drug interaction [Unknown]
  - Dry throat [Unknown]
  - Ocular hyperaemia [Unknown]
